FAERS Safety Report 8659662 (Version 2)
Quarter: 2013Q4

REPORT INFORMATION
  Report Type: Spontaneous
  Country: US (occurrence: US)
  Receive Date: 20120711
  Receipt Date: 20131017
  Transmission Date: 20140711
  Serious: Yes (Other)
  Sender: FDA-Public Use
  Company Number: US-US-EMD SERONO, INC.-7145737

PATIENT
  Age: 55 Year
  Sex: Female

DRUGS (3)
  1. REBIF [Suspect]
     Indication: MULTIPLE SCLEROSIS
     Route: 058
     Dates: start: 20110829, end: 20120131
  2. REBIF [Suspect]
     Route: 058
     Dates: start: 20120601, end: 20121201
  3. REBIF [Suspect]
     Route: 058
     Dates: start: 20130604, end: 201309

REACTIONS (2)
  - Coronary artery bypass [Recovered/Resolved]
  - Multiple sclerosis relapse [Not Recovered/Not Resolved]
